FAERS Safety Report 9790750 (Version 3)
Quarter: 2014Q1

REPORT INFORMATION
  Report Type: Spontaneous
  Country: US (occurrence: US)
  Receive Date: 20131231
  Receipt Date: 20140321
  Transmission Date: 20141002
  Serious: Yes (Hospitalization)
  Sender: FDA-Public Use
  Company Number: US-009507513-1312USA008972

PATIENT
  Age: 72 Year
  Sex: Female
  Weight: 130.16 kg

DRUGS (17)
  1. OXYTROL FOR WOMEN [Suspect]
     Indication: PROPHYLAXIS
     Dosage: 1 DF, ONCE
     Route: 062
     Dates: start: 20131204, end: 20131205
  2. COUMADIN [Concomitant]
     Indication: ATRIAL FIBRILLATION
     Dosage: UNK, UNKNOWN
     Route: 048
  3. TAZTIA XT [Concomitant]
     Indication: HYPERTENSION
     Dosage: UNK, UNKNOWN
     Route: 048
  4. TAZTIA XT [Concomitant]
     Indication: ATRIAL FIBRILLATION
  5. ZANTAC [Concomitant]
     Indication: GASTRIC DISORDER
     Dosage: UNK, UNKNOWN
     Route: 048
  6. NITROGLYCERIN [Concomitant]
     Indication: CHEST PAIN
     Dosage: UNK, UNKNOWN
     Route: 062
  7. BENADRYL [Concomitant]
     Indication: HYPERSENSITIVITY
     Dosage: UNK, UNKNOWN
     Route: 048
  8. TYLENOL [Concomitant]
     Indication: ARTHRITIS
     Dosage: 2000-3000 MG, QD
     Route: 048
  9. NITROGLYCERIN [Concomitant]
     Indication: CHEST PAIN
     Dosage: UNK, UNKNOWN
     Route: 048
  10. LOPRESSOR [Concomitant]
     Indication: PRODUCT USED FOR UNKNOWN INDICATION
     Dosage: 100 MG, BID
     Route: 048
  11. TRIAVIL [Concomitant]
     Indication: SLEEP DISORDER
     Dosage: 4-10 MG
     Route: 065
  12. CHROMIUM POLYNICOTINATE [Concomitant]
     Indication: PRODUCT USED FOR UNKNOWN INDICATION
     Dosage: 200 MG, QD
  13. ORIGIN CO Q-10 [Concomitant]
     Indication: PRODUCT USED FOR UNKNOWN INDICATION
     Dosage: 50 MG, QD
     Route: 065
  14. TUMS [Concomitant]
     Indication: PRODUCT USED FOR UNKNOWN INDICATION
     Dosage: 1000 MG, UNK
     Route: 065
  15. OMEGA-3 MARINE TRIGLYCERIDES [Concomitant]
     Indication: PRODUCT USED FOR UNKNOWN INDICATION
     Dosage: 1200 MG, UNK
     Route: 065
  16. MINITRAN (NITROGLYCERIN) [Concomitant]
     Indication: CHEST PAIN
     Dosage: 0.1 MG, UNK
     Route: 065
  17. METAMUCIL [Concomitant]
     Indication: PRODUCT USED FOR UNKNOWN INDICATION
     Dosage: 1 TEASPOON

REACTIONS (4)
  - Chest pain [Recovered/Resolved]
  - Blood pressure increased [Recovered/Resolved with Sequelae]
  - Heart rate increased [Recovered/Resolved]
  - Palpitations [Recovered/Resolved]
